FAERS Safety Report 8543331-6 (Version None)
Quarter: 2012Q3

REPORT INFORMATION
  Report Type: 
  Country: None (occurrence: None)
  Receive Date: 20120727
  Receipt Date: 20120719
  Transmission Date: 20120928
  Serious: Yes (Other)
  Sender: FDA-Public Use
  Company Number: US-US-EMD SERONO, INC.-7086647

PATIENT
  Sex: Female
  Weight: 84 kg

DRUGS (4)
  1. REBIF [Suspect]
     Route: 058
     Dates: start: 20080808
  2. REBIF [Suspect]
     Indication: MULTIPLE SCLEROSIS
     Route: 058
     Dates: start: 20050101
  3. NEURONTIN [Concomitant]
     Indication: PAIN
  4. ELAVIL [Concomitant]
     Indication: MIGRAINE

REACTIONS (4)
  - INJECTION SITE ERYTHEMA [None]
  - CENTRAL NERVOUS SYSTEM LESION [None]
  - OPTIC NEURITIS [None]
  - MIGRAINE [None]
